FAERS Safety Report 17267592 (Version 6)
Quarter: 2021Q1

REPORT INFORMATION
  Report Type: Spontaneous
  Country: CA (occurrence: CA)
  Receive Date: 20200114
  Receipt Date: 20210118
  Transmission Date: 20210419
  Serious: Yes (Hospitalization, Other)
  Sender: FDA-Public Use
  Company Number: CA-PFIZER INC-2020011091

PATIENT
  Age: 61 Year
  Sex: Male

DRUGS (2)
  1. LEUCOVORIN. [Concomitant]
     Active Substance: LEUCOVORIN
     Indication: ACUTE KIDNEY INJURY
     Dosage: 1860 MG ((HIGH DOSE 1000 MG/M^2) OVER 30 MINUTES EVERY 3 HOURS)
     Route: 042
  2. METHOTREXATE SODIUM. [Suspect]
     Active Substance: METHOTREXATE SODIUM
     Indication: DIFFUSE LARGE B-CELL LYMPHOMA
     Dosage: 6500 MG, CYCLIC (HIGH DOSE (EQUAL TO 3500 MG/M^2) OVER 4 HOURS)
     Route: 042

REACTIONS (6)
  - Nephropathy toxic [Recovered/Resolved]
  - Neurotoxicity [Recovered/Resolved]
  - Febrile neutropenia [Unknown]
  - Status epilepticus [Recovered/Resolved]
  - Transaminases increased [Recovered/Resolved]
  - Acute kidney injury [Recovered/Resolved]
